FAERS Safety Report 9394639 (Version 1)
Quarter: 2013Q3

REPORT INFORMATION
  Report Type: Report from Study
  Country: BR (occurrence: BR)
  Receive Date: 20130711
  Receipt Date: 20130711
  Transmission Date: 20140515
  Serious: Yes (Death)
  Sender: FDA-Public Use
  Company Number: PHHY2013BR073427

PATIENT
  Age: 83 Year
  Sex: Female
  Weight: 54 kg

DRUGS (9)
  1. DIOVAN [Suspect]
     Indication: HYPERTENSION
     Dosage: 1 DF (320MG), DAILY
     Route: 048
  2. CARVEDILOL [Concomitant]
     Indication: HYPERTENSION
     Dosage: 1 DF (12MG), BID, ONE IN MORNING AND ONE AT NIGHT
     Route: 048
  3. METHYLDOPA [Concomitant]
     Dosage: 1 DF (500MG), BID, ONE IN MORNING AND ONE AT NIGHT
     Route: 048
  4. SIMVASTATIN [Concomitant]
     Dosage: 1 DF, AT NIGHT
     Route: 048
  5. ASPIRIN [Concomitant]
     Indication: COAGULOPATHY
     Dosage: 1 DF (100MG), IN THE MORNING
     Route: 048
  6. FUROSEMIDE [Concomitant]
     Indication: DIURETIC THERAPY
     Dosage: 1 DF (40MG), IN THE MORNING
     Route: 048
  7. ZETSIM [Concomitant]
     Dosage: 1 DF (10MG EZET/ 40MG SIMV), AT NIGHT
     Route: 048
  8. OMEPRAZOLE [Concomitant]
     Dosage: 1 DF (20MG), DAILY
     Route: 048
  9. INSULINA NPH [Concomitant]
     Indication: DIABETES MELLITUS
     Dosage: 40 IU, (36 IU IN MORNING AND 4 IU AT NIGHT)
     Route: 058

REACTIONS (2)
  - Cerebral ischaemia [Fatal]
  - Myocardial ischaemia [Fatal]
